FAERS Safety Report 10143936 (Version 2)
Quarter: 2014Q2

REPORT INFORMATION
  Report Type: Report from Study
  Country: NL (occurrence: NL)
  Receive Date: 20140430
  Receipt Date: 20140519
  Transmission Date: 20141212
  Serious: Yes (Hospitalization)
  Sender: FDA-Public Use
  Company Number: NL-JNJFOC-20140415357

PATIENT
  Age: 8 Decade
  Sex: Male

DRUGS (11)
  1. ABIRATERONE ACETATE [Suspect]
     Indication: PROSTATE CANCER
     Route: 048
     Dates: start: 20121206, end: 20121213
  2. ABIRATERONE ACETATE [Suspect]
     Indication: PROSTATE CANCER
     Route: 048
     Dates: start: 20121124, end: 20121128
  3. PREDNISONE [Concomitant]
     Route: 048
  4. METOPROLOL [Concomitant]
     Route: 048
  5. CALCICHEW [Concomitant]
     Dosage: 1000 MG ORALLY ONCE A DAY
     Route: 048
  6. PANTOZOL [Concomitant]
     Route: 048
  7. PRIMPERAN [Concomitant]
     Dosage: AS NEEDED
     Route: 054
  8. DUROGESIC [Concomitant]
     Dosage: ON ALTERNATE DAYS
     Route: 062
  9. MOVICOLON [Concomitant]
     Dosage: SACHET TWICE A DAY ORALLY, AS NEEDED
     Route: 048
  10. OXYNORM [Concomitant]
     Dosage: 10 MG TOTAL) ORALLY, 4 TIMES A DAY AS NEEDED
     Route: 048
  11. PARACETAMOL [Concomitant]
     Route: 048

REACTIONS (10)
  - Pelvic pain [Recovering/Resolving]
  - Prostate cancer metastatic [Unknown]
  - Back pain [Recovering/Resolving]
  - Diverticulitis [Recovering/Resolving]
  - Arthralgia [Recovering/Resolving]
  - Abdominal pain lower [Recovering/Resolving]
  - Constipation [Recovered/Resolved]
  - Blood alkaline phosphatase increased [Unknown]
  - Aspartate aminotransferase increased [Unknown]
  - Gamma-glutamyltransferase increased [Unknown]
